FAERS Safety Report 4889538-0 (Version None)
Quarter: 2006Q1

REPORT INFORMATION
  Report Type: 
  Country: None (occurrence: None)
  Receive Date: 20060124
  Receipt Date: 20060103
  Transmission Date: 20060701
  Serious: Yes (Hospitalization)
  Sender: FDA-Public Use
  Company Number: 2006UW00106

PATIENT
  Age: 31 Year
  Sex: Female

DRUGS (4)
  1. SEROQUEL [Suspect]
     Indication: BIPOLAR DISORDER
     Route: 048
     Dates: start: 20050927
  2. SEROQUEL [Suspect]
     Route: 048
     Dates: end: 20051205
  3. WELLBUTRIN [Concomitant]
     Indication: DEPRESSION
     Dates: start: 20050927
  4. AMBIEN [Concomitant]
     Indication: INSOMNIA
     Route: 048
     Dates: start: 20050927

REACTIONS (8)
  - DIABETES MELLITUS [None]
  - DIABETIC HYPEROSMOLAR COMA [None]
  - HYPERGLYCAEMIA [None]
  - HYPOKALAEMIA [None]
  - IRON DEFICIENCY ANAEMIA [None]
  - POLYDIPSIA [None]
  - POLYURIA [None]
  - RENAL FAILURE [None]
